FAERS Safety Report 5541904-6 (Version None)
Quarter: 2007Q4

REPORT INFORMATION
  Report Type: 
  Country: None (occurrence: None)
  Receive Date: 20071210
  Receipt Date: 20071207
  Transmission Date: 20080405
  Serious: Yes (Hospitalization)
  Sender: FDA-Public Use
  Company Number: US-BRISTOL-MYERS SQUIBB COMPANY-14008395

PATIENT
  Age: 77 Year
  Sex: Male
  Weight: 85 kg

DRUGS (12)
  1. TAXOL [Suspect]
     Indication: NON-SMALL CELL LUNG CANCER
     Dosage: INJECTION
     Route: 042
     Dates: start: 20071107, end: 20071107
  2. CARBOPLATIN [Suspect]
     Indication: NON-SMALL CELL LUNG CANCER
     Dosage: INJECTION
     Route: 042
     Dates: start: 20071107, end: 20071107
  3. ERLOTINIB [Suspect]
     Indication: NON-SMALL CELL LUNG CANCER
     Dosage: TABLET
     Route: 048
     Dates: start: 20071108, end: 20071111
  4. NORCO [Concomitant]
  5. POLYETHYLENE GLYCOL [Concomitant]
  6. FENTANYL [Concomitant]
  7. KYTRIL [Concomitant]
  8. CIMETIDINE [Concomitant]
  9. BENADRYL [Concomitant]
  10. ZOFRAN [Concomitant]
  11. DEXAMETHASONE TAB [Concomitant]
  12. ANZEMET [Concomitant]

REACTIONS (1)
  - DEHYDRATION [None]
